FAERS Safety Report 10067215 (Version 3)
Quarter: 2014Q2

REPORT INFORMATION
  Report Type: Spontaneous
  Country: US (occurrence: None)
  Receive Date: 20140407
  Receipt Date: 20140617
  Transmission Date: 20141212
  Serious: Yes (Hospitalization)
  Sender: FDA-Public Use
  Company Number: US-000963

PATIENT
  Age: 68 Year
  Sex: Female

DRUGS (2)
  1. GATTEX [Suspect]
     Indication: SHORT-BOWEL SYNDROME
     Dosage: (0.256 ML QD, STREN/VOLUM:  0.256 ML|FREQU:  1 X DAY SUBCUTANEOUS)??
     Route: 058
     Dates: start: 20140221, end: 20140319
  2. SOLUTIONS FOR PARENTERAL NUTRITION [Concomitant]

REACTIONS (9)
  - Swelling face [None]
  - Local swelling [None]
  - Peripheral swelling [None]
  - Dyspnoea [None]
  - Chills [None]
  - Renal disorder [None]
  - Cystitis [None]
  - Venous stent insertion [None]
  - Vascular occlusion [None]
